FAERS Safety Report 9380660 (Version 3)
Quarter: 2013Q3

REPORT INFORMATION
  Report Type: Spontaneous
  Country: US (occurrence: US)
  Receive Date: 20130702
  Receipt Date: 20130920
  Transmission Date: 20140515
  Serious: Yes (Hospitalization, Other)
  Sender: FDA-Public Use
  Company Number: US-ELI_LILLY_AND_COMPANY-US201306007304

PATIENT
  Age: 60 Year
  Sex: Female
  Weight: 63.49 kg

DRUGS (1)
  1. EFFIENT [Suspect]
     Indication: STENT PLACEMENT
     Dosage: UNK, UNKNOWN
     Route: 048
     Dates: start: 201206

REACTIONS (3)
  - Thrombosis [Recovered/Resolved]
  - Transient ischaemic attack [Unknown]
  - Arteriosclerosis [Recovered/Resolved]
